FAERS Safety Report 4674348-X (Version None)
Quarter: 2005Q2

REPORT INFORMATION
  Report Type: 
  Country: None (occurrence: None)
  Receive Date: 20050526
  Receipt Date: 20050420
  Transmission Date: 20051028
  Serious: Yes (Hospitalization)
  Sender: FDA-Public Use
  Company Number: JP-BRISTOL-MYERS SQUIBB COMPANY-12941498

PATIENT
  Age: 66 Year
  Sex: Female

DRUGS (7)
  1. MITOMYCIN-C BULK POWDER [Suspect]
     Indication: OPEN ANGLE GLAUCOMA
     Route: 061
     Dates: start: 19890221, end: 19890221
  2. SANPILO [Suspect]
     Indication: OPEN ANGLE GLAUCOMA
     Route: 061
     Dates: start: 19870128, end: 20000324
  3. SANPILO [Suspect]
     Route: 061
     Dates: start: 20000324
  4. MIKELAN [Concomitant]
     Route: 061
     Dates: start: 19870128, end: 20000324
  5. DIAMOX [Concomitant]
     Route: 048
     Dates: start: 19870128
  6. DIPIVEFRINE HCL [Concomitant]
     Route: 061
     Dates: start: 19890208
  7. HYPADIL [Concomitant]
     Route: 061
     Dates: start: 20000324

REACTIONS (1)
  - PUPILLARY DISORDER [None]
